FAERS Safety Report 12099653 (Version 1)
Quarter: 2016Q1

REPORT INFORMATION
  Report Type: Spontaneous
  Country: US (occurrence: None)
  Receive Date: 20160219
  Receipt Date: 20160219
  Transmission Date: 20160526
  Serious: Yes (Hospitalization)
  Sender: FDA-Public Use
  Company Number: None

PATIENT
  Age: 64 Year
  Sex: Male
  Weight: 90 kg

DRUGS (10)
  1. KEPPRA [Concomitant]
     Active Substance: LEVETIRACETAM
  2. NUVIGIL [Suspect]
     Active Substance: ARMODAFINIL
     Dates: end: 20160207
  3. K-DUR [Concomitant]
     Active Substance: POTASSIUM CHLORIDE
  4. DIGOXIN. [Concomitant]
     Active Substance: DIGOXIN
  5. COREG [Concomitant]
     Active Substance: CARVEDILOL
  6. LIPITOR [Concomitant]
     Active Substance: ATORVASTATIN CALCIUM
  7. DECADRON [Concomitant]
     Active Substance: DEXAMETHASONE
  8. MIRALAX [Concomitant]
     Active Substance: POLYETHYLENE GLYCOL 3350
  9. PROTONIX [Concomitant]
     Active Substance: PANTOPRAZOLE SODIUM
  10. COLACE [Concomitant]
     Active Substance: DOCUSATE SODIUM

REACTIONS (1)
  - Asthenia [None]

NARRATIVE: CASE EVENT DATE: 20160208
